FAERS Safety Report 9849784 (Version 3)
Quarter: 2015Q4

REPORT INFORMATION
  Report Type: Spontaneous
  Country: JP (occurrence: JP)
  Receive Date: 20140128
  Receipt Date: 20151026
  Transmission Date: 20160305
  Serious: Yes (Death, Hospitalization)
  Sender: FDA-Public Use
  Company Number: JP-SA-THYM-1002109

PATIENT
  Age: 69 Year
  Sex: Female
  Weight: 52 kg

DRUGS (13)
  1. LEVOFLOXACIN. [Concomitant]
     Active Substance: LEVOFLOXACIN
     Indication: PROPHYLAXIS
     Dosage: 500 MG, QD
     Route: 065
     Dates: start: 20100915, end: 20101027
  2. PREDNISOLONE. [Concomitant]
     Active Substance: PREDNISOLONE
     Indication: PROPHYLAXIS
     Dosage: 25 MG, QD
     Route: 048
     Dates: start: 20100929, end: 20101005
  3. PREDNISOLONE. [Concomitant]
     Active Substance: PREDNISOLONE
     Indication: PROPHYLAXIS
     Dosage: 5 MG, QOD
     Route: 048
     Dates: start: 20101021, end: 20101027
  4. FLUCONAZOLE. [Concomitant]
     Active Substance: FLUCONAZOLE
     Indication: PROPHYLAXIS
     Dosage: 200 MG, QD
     Route: 065
     Dates: start: 20100915, end: 20100922
  5. ACICLOVIR [Concomitant]
     Active Substance: ACYCLOVIR
     Indication: PROPHYLAXIS
     Dosage: 200 MG, QD
     Route: 065
  6. ANTI-THYMOCYTE GLOBULIN (RABBIT)/RABBIT ANTI-HUMAN THYMOCYTE IMMUNOGLOBULIN [Suspect]
     Active Substance: LAPINE T-LYMPHOCYTE IMMUNE GLOBULIN
     Indication: APLASTIC ANAEMIA
     Dosage: 3.75 MG/KG, QD
     Route: 042
     Dates: start: 20100915, end: 20100919
  7. PREDNISOLONE. [Concomitant]
     Active Substance: PREDNISOLONE
     Indication: PROPHYLAXIS
     Dosage: 10 MG, QD
     Route: 048
     Dates: start: 20101006, end: 20101012
  8. CICLOSPORIN [Concomitant]
     Active Substance: CYCLOSPORINE
     Indication: APLASTIC ANAEMIA
     Dosage: 100 MG, BID
     Route: 065
     Dates: start: 20100510, end: 20101031
  9. DIPHENHYDRAMINE HYDROCHLORIDE. [Concomitant]
     Active Substance: DIPHENHYDRAMINE HYDROCHLORIDE
     Indication: PREMEDICATION
     Dosage: 30 MG, QD
     Route: 065
     Dates: start: 20100915, end: 20100919
  10. PREDNISOLONE. [Concomitant]
     Active Substance: PREDNISOLONE
     Indication: PROPHYLAXIS
     Dosage: 50 MG, QD
     Route: 048
     Dates: start: 20100920, end: 20100928
  11. PREDNISOLONE. [Concomitant]
     Active Substance: PREDNISOLONE
     Indication: PROPHYLAXIS
     Dosage: 5 MG, QD
     Route: 048
     Dates: start: 20101014, end: 20101020
  12. METHYLPREDNISOLONE SODIUM SUCCINATE. [Concomitant]
     Active Substance: METHYLPREDNISOLONE SODIUM SUCCINATE
     Indication: PREMEDICATION
     Dosage: 125 MG, QD
     Route: 065
     Dates: start: 20100915, end: 20100919
  13. PARACETAMOL [Concomitant]
     Active Substance: ACETAMINOPHEN
     Indication: PREMEDICATION
     Dosage: 300 MG, QD
     Route: 065
     Dates: start: 20100915, end: 20100919

REACTIONS (16)
  - Acute kidney injury [Fatal]
  - Cytomegalovirus infection [Recovered/Resolved]
  - Epstein-Barr virus associated lymphoproliferative disorder [Fatal]
  - Hepatomegaly [Fatal]
  - Lymphocytosis [Unknown]
  - Stenotrophomonas infection [Fatal]
  - Haemodialysis [None]
  - Multi-organ failure [None]
  - Pyrexia [Fatal]
  - Stenotrophomonas sepsis [Not Recovered/Not Resolved]
  - Pleural effusion [None]
  - Acute hepatic failure [Fatal]
  - Hypoglycaemia [Unknown]
  - Lactic acidosis [None]
  - Diffuse large B-cell lymphoma [None]
  - Renal impairment [Fatal]

NARRATIVE: CASE EVENT DATE: 20101018
